FAERS Safety Report 13332805 (Version 1)
Quarter: 2017Q1

REPORT INFORMATION
  Report Type: Spontaneous
  Country: US (occurrence: US)
  Receive Date: 20170314
  Receipt Date: 20170314
  Transmission Date: 20170428
  Serious: No
  Sender: FDA-Public Use
  Company Number: US-BAYER-2017-048713

PATIENT
  Sex: Female

DRUGS (16)
  1. FAMOTIDINE. [Concomitant]
     Active Substance: FAMOTIDINE
     Dosage: 40 MG, QD
     Route: 048
     Dates: start: 20160507
  2. METOPROLOL TARTRATE. [Concomitant]
     Active Substance: METOPROLOL TARTRATE
     Dosage: 0.5 DF, BID
     Route: 048
     Dates: start: 20160801
  3. VOLTAREN [Concomitant]
     Active Substance: DICLOFENAC SODIUM
     Dosage: 2 G, QID, PRN
     Route: 061
     Dates: start: 20160718
  4. PREMARIN [Concomitant]
     Active Substance: ESTROGENS, CONJUGATED
     Dosage: 1 G, OW, HS
     Route: 067
     Dates: start: 20161028
  5. CLARITIN [Suspect]
     Active Substance: LORATADINE
     Dosage: UNK
  6. KENALOG [Concomitant]
     Active Substance: TRIAMCINOLONE ACETONIDE
     Dosage: 40 MG, UNK
     Dates: start: 20160927
  7. RECLAST [Concomitant]
     Active Substance: ZOLEDRONIC ACID
     Dosage: 5 MG, UNK
     Route: 042
     Dates: start: 20151110
  8. LEVOTHYROXINE. [Concomitant]
     Active Substance: LEVOTHYROXINE
     Dosage: 150 ?G, QD
     Route: 048
     Dates: start: 20160517
  9. TRIAMTERENE. [Concomitant]
     Active Substance: TRIAMTERENE
     Dosage: 0.5 DF, QD
     Route: 048
     Dates: start: 20140830
  10. MAGNESIUM [Concomitant]
     Active Substance: MAGNESIUM
  11. FISH OIL [Concomitant]
     Active Substance: FISH OIL
  12. BAYER ASPIRIN [Concomitant]
     Active Substance: ASPIRIN
     Dosage: 2 DF, QD
     Route: 048
     Dates: start: 20160718
  13. TYLENOL PM [Concomitant]
     Active Substance: ACETAMINOPHEN\DIPHENHYDRAMINE
     Dosage: UNK UNK, PRN
  14. BORAGE OIL [Concomitant]
     Active Substance: BORAGE OIL
  15. VITAMIN D [Concomitant]
     Active Substance: CHOLECALCIFEROL
     Dosage: 5000 U, QD
     Route: 048
     Dates: start: 20111017
  16. MELATONIN [Concomitant]
     Active Substance: MELATONIN
     Dosage: 3 MG, UNK

REACTIONS (2)
  - Drug hypersensitivity [Unknown]
  - Blood pressure increased [Unknown]
